FAERS Safety Report 18818245 (Version 1)
Quarter: 2021Q1

REPORT INFORMATION
  Report Type: Spontaneous
  Country: FR (occurrence: FR)
  Receive Date: 20210201
  Receipt Date: 20210201
  Transmission Date: 20210419
  Serious: Yes (Hospitalization)
  Sender: FDA-Public Use
  Company Number: NVSC2021FR020402

PATIENT
  Age: 93 Year
  Sex: Male
  Weight: 51.6 kg

DRUGS (1)
  1. AMOXICILLINE ACIDE CLAVULANIQUE SANDOZ [Suspect]
     Active Substance: AMOXICILLIN\CLAVULANATE POTASSIUM
     Indication: LUNG DISORDER
     Dosage: 3 G
     Route: 048
     Dates: start: 20201128, end: 20201206

REACTIONS (1)
  - Oral fungal infection [Recovering/Resolving]

NARRATIVE: CASE EVENT DATE: 20201201
